FAERS Safety Report 8190115-7 (Version None)
Quarter: 2012Q1

REPORT INFORMATION
  Report Type: 
  Country: None (occurrence: None)
  Receive Date: 20120307
  Receipt Date: 20120307
  Transmission Date: 20120608
  Serious: Yes (Hospitalization)
  Sender: FDA-Public Use
  Company Number: None

PATIENT
  Age: 54 Year
  Sex: Male
  Weight: 120 kg

DRUGS (2)
  1. VANCOMYCIN [Concomitant]
  2. VANCOMYCIN [Suspect]

REACTIONS (2)
  - PERIPROSTHETIC FRACTURE [None]
  - PROCEDURAL HYPOTENSION [None]
